FAERS Safety Report 23448085 (Version 6)
Quarter: 2024Q2

REPORT INFORMATION
  Report Type: Spontaneous
  Country: US (occurrence: US)
  Receive Date: 20240126
  Receipt Date: 20240603
  Transmission Date: 20240716
  Serious: Yes (Other)
  Sender: FDA-Public Use
  Company Number: US-PFIZER INC-202400015961

PATIENT
  Age: 35 Year
  Sex: Female

DRUGS (4)
  1. XELJANZ [Suspect]
     Active Substance: TOFACITINIB CITRATE
     Dosage: 10 MG, 2X/DAY
     Route: 048
  2. ENTOCORT [Concomitant]
     Active Substance: BUDESONIDE
  3. COZAAR [Concomitant]
     Active Substance: LOSARTAN POTASSIUM
  4. ZOFRAN [Concomitant]
     Active Substance: ONDANSETRON HYDROCHLORIDE

REACTIONS (9)
  - Colitis [Unknown]
  - Haematochezia [Unknown]
  - Infection [Unknown]
  - Diarrhoea [Unknown]
  - Nausea [Unknown]
  - Vomiting [Unknown]
  - Anal incontinence [Unknown]
  - Weight decreased [Unknown]
  - Erythema [Unknown]
